FAERS Safety Report 7705481-3 (Version None)
Quarter: 2011Q3

REPORT INFORMATION
  Report Type: 
  Country: None (occurrence: None)
  Receive Date: 20110824
  Receipt Date: 20110816
  Transmission Date: 20111222
  Serious: Yes (Death, Life-Threatening, Hospitalization)
  Sender: FDA-Public Use
  Company Number: JP-ASTELLAS-2011US004735

PATIENT
  Sex: Male

DRUGS (10)
  1. OXYCONTIN [Concomitant]
     Indication: PRODUCT USED FOR UNKNOWN INDICATION
     Dosage: UNK
     Route: 065
     Dates: start: 20110425, end: 20110731
  2. TARCEVA [Suspect]
     Indication: LUNG ADENOCARCINOMA
     Dosage: 150 MG, UID/QD
     Route: 048
     Dates: start: 20110715, end: 20110730
  3. NAUZELIN [Concomitant]
     Indication: PRODUCT USED FOR UNKNOWN INDICATION
     Dosage: UNK
     Route: 065
     Dates: start: 20101201, end: 20110731
  4. AMLODIPINE [Concomitant]
     Indication: PRODUCT USED FOR UNKNOWN INDICATION
     Dosage: UNK
     Route: 065
     Dates: end: 20110731
  5. GOSHAJINKIGAN [Concomitant]
     Indication: PRODUCT USED FOR UNKNOWN INDICATION
     Dosage: UNK
     Route: 065
     Dates: start: 20110310, end: 20110731
  6. DIOVAN [Concomitant]
     Indication: PRODUCT USED FOR UNKNOWN INDICATION
     Dosage: UNK
     Route: 065
     Dates: end: 20110731
  7. MUCOSTA [Concomitant]
     Indication: PRODUCT USED FOR UNKNOWN INDICATION
     Dosage: UNK
     Route: 065
     Dates: start: 20101215, end: 20110731
  8. MAGMITT [Concomitant]
     Indication: PRODUCT USED FOR UNKNOWN INDICATION
     Dosage: UNK
     Route: 065
     Dates: start: 20101215, end: 20110731
  9. TS 1 [Suspect]
     Indication: LUNG ADENOCARCINOMA
     Dosage: 60 MG, BID
     Route: 048
     Dates: start: 20110715, end: 20110730
  10. ACETAMINOPHEN [Concomitant]
     Indication: PRODUCT USED FOR UNKNOWN INDICATION
     Dosage: UNK
     Route: 065
     Dates: start: 20101215, end: 20110731

REACTIONS (11)
  - DIARRHOEA [None]
  - STOMATITIS [None]
  - PNEUMONIA [None]
  - SEPSIS [None]
  - ACUTE PRERENAL FAILURE [None]
  - SEPTIC SHOCK [None]
  - ENTERITIS INFECTIOUS [None]
  - DECREASED APPETITE [None]
  - PYREXIA [None]
  - DEHYDRATION [None]
  - DECUBITUS ULCER [None]
